FAERS Safety Report 24966900 (Version 1)
Quarter: 2025Q1

REPORT INFORMATION
  Report Type: Report from Study
  Country: CO (occurrence: CO)
  Receive Date: 20250213
  Receipt Date: 20250213
  Transmission Date: 20250409
  Serious: Yes (Hospitalization)
  Sender: EISAI
  Company Number: CO-Eisai-EC-2025-184105

PATIENT
  Age: 47 Year
  Sex: Female
  Weight: 43.00 kg

DRUGS (3)
  1. LENVIMA [Suspect]
     Active Substance: LENVATINIB
     Indication: Thyroid cancer
     Dosage: UNKNOWN
     Dates: start: 20241129, end: 20241216
  2. LENVIMA [Suspect]
     Active Substance: LENVATINIB
     Dosage: MEDICATION NOT DELIVERED SO WAS OFF SINCE JANUARY4TH 2025
     Dates: start: 20241225, end: 20250104
  3. LENVIMA [Suspect]
     Active Substance: LENVATINIB
     Dates: start: 20250110, end: 20250204

REACTIONS (6)
  - Chest pain [Not Recovered/Not Resolved]
  - Blood pressure increased [Not Recovered/Not Resolved]
  - Gait inability [Not Recovered/Not Resolved]
  - Skin haemorrhage [Not Recovered/Not Resolved]
  - Headache [Not Recovered/Not Resolved]
  - Fluid retention [Not Recovered/Not Resolved]

NARRATIVE: CASE EVENT DATE: 20250101
